FAERS Safety Report 23152078 (Version 2)
Quarter: 2023Q4

REPORT INFORMATION
  Report Type: Report from Study
  Country: TW (occurrence: TW)
  Receive Date: 20231107
  Receipt Date: 20231206
  Transmission Date: 20240109
  Serious: Yes (Other)
  Sender: FDA-Public Use
  Company Number: TW-BAYER-2023A156226

PATIENT
  Sex: Female

DRUGS (2)
  1. EYLEA [Suspect]
     Active Substance: AFLIBERCEPT
     Indication: Choroidal neovascularisation
     Dosage: UNK UNK, ONCE, 40 MG/ML
     Dates: start: 20230706, end: 20230706
  2. EYLEA [Suspect]
     Active Substance: AFLIBERCEPT
     Dosage: UNK UNK, ONCE, 40 MG/ML
     Dates: start: 20231024, end: 20231024

REACTIONS (3)
  - Eye haemorrhage [Recovered/Resolved]
  - Visual impairment [Recovered/Resolved]
  - Eyelid injury [Recovered/Resolved]

NARRATIVE: CASE EVENT DATE: 20230706
